FAERS Safety Report 6402182-9 (Version None)
Quarter: 2009Q4

REPORT INFORMATION
  Report Type: 
  Country: None (occurrence: None)
  Receive Date: 20091015
  Receipt Date: 20091002
  Transmission Date: 20100525
  Serious: Yes (Hospitalization)
  Sender: FDA-Public Use
  Company Number: US-MYLANLABS-2009S1017283

PATIENT
  Age: 60 Year
  Sex: Male

DRUGS (5)
  1. NAPROXEN [Suspect]
     Route: 048
  2. LISINOPRIL [Suspect]
     Route: 048
  3. AMLODIPINE [Concomitant]
     Route: 048
  4. CLOPIDOGREL [Concomitant]
     Route: 048
  5. RANITIDINE [Concomitant]
     Route: 048

REACTIONS (2)
  - HYPERKALAEMIA [None]
  - PARALYSIS [None]
